FAERS Safety Report 16952907 (Version 3)
Quarter: 2019Q4

REPORT INFORMATION
  Report Type: Spontaneous
  Country: GB (occurrence: GB)
  Receive Date: 20191023
  Receipt Date: 20191112
  Transmission Date: 20200122
  Serious: Yes (Other)
  Sender: FDA-Public Use
  Company Number: GB-BEH-2019108174

PATIENT
  Weight: 1.98 kg

DRUGS (2)
  1. HUMAN IMMUNOGLOBULIN (NC) [Suspect]
     Active Substance: HUMAN IMMUNOGLOBULIN G
     Dosage: UNK
     Route: 042
  2. HUMAN IMMUNOGLOBULIN (NC) [Suspect]
     Active Substance: HUMAN IMMUNOGLOBULIN G
     Indication: HYPERBILIRUBINAEMIA NEONATAL
     Dosage: UNK
     Route: 064

REACTIONS (5)
  - Premature baby [Unknown]
  - Hyperbilirubinaemia neonatal [Unknown]
  - Maternal exposure timing unspecified [Unknown]
  - Product use in unapproved indication [Unknown]
  - No adverse event [Unknown]
